FAERS Safety Report 18529777 (Version 5)
Quarter: 2022Q4

REPORT INFORMATION
  Report Type: Spontaneous
  Country: JP (occurrence: JP)
  Receive Date: 20201121
  Receipt Date: 20221030
  Transmission Date: 20230112
  Serious: Yes (Other)
  Sender: FDA-Public Use
  Company Number: JP-UNITED THERAPEUTICS-UNT-2020-018207

PATIENT
  Age: 36 Year
  Sex: Female

DRUGS (8)
  1. REMODULIN [Suspect]
     Active Substance: TREPROSTINIL
     Indication: Pulmonary arterial hypertension
     Dosage: 0.190 ?G/KG, CONTINUING
     Route: 041
     Dates: start: 20191008
  2. REMODULIN [Suspect]
     Active Substance: TREPROSTINIL
     Dosage: (0.150 ?G/KG TO 0.200 ?G/KG), CONTINUING
     Route: 041
     Dates: start: 2020, end: 2020
  3. REMODULIN [Suspect]
     Active Substance: TREPROSTINIL
     Dosage: 0.077 ?G/KG, CONTINUING
     Route: 041
     Dates: start: 202011, end: 2020
  4. REMODULIN [Suspect]
     Active Substance: TREPROSTINIL
     Dosage: 0.207 ?G/KG, CONTINUING
     Route: 041
     Dates: start: 2020, end: 2020
  5. REMODULIN [Suspect]
     Active Substance: TREPROSTINIL
     Dosage: 0.060 ?G/KG, CONTINUING
     Route: 041
     Dates: start: 2020
  6. MACITENTAN [Concomitant]
     Active Substance: MACITENTAN
     Indication: Pulmonary arterial hypertension
     Dosage: 10 MG/DAY
     Route: 065
  7. TADALAFIL [Concomitant]
     Active Substance: TADALAFIL
     Indication: Pulmonary arterial hypertension
     Dosage: 40 MG/DAY
     Route: 065
  8. AMBRISENTAN [Concomitant]
     Active Substance: AMBRISENTAN
     Indication: Pulmonary arterial hypertension
     Dosage: 5 MG/ DAY
     Route: 065

REACTIONS (6)
  - Pulmonary hypertension [Unknown]
  - Cardiac failure [Unknown]
  - Haemoptysis [Unknown]
  - Cardio-respiratory arrest [Unknown]
  - Platelet count decreased [Recovering/Resolving]
  - Atelectasis [Unknown]

NARRATIVE: CASE EVENT DATE: 20200101
